FAERS Safety Report 7277610-X (Version None)
Quarter: 2011Q1

REPORT INFORMATION
  Report Type: 
  Country: None (occurrence: None)
  Receive Date: 20110207
  Receipt Date: 20110128
  Transmission Date: 20110831
  Serious: Yes (Death, Hospitalization)
  Sender: FDA-Public Use
  Company Number: GB-JNJFOC-20070500758

PATIENT
  Age: 55 Year
  Sex: Male

DRUGS (4)
  1. CINNARIZINE [Suspect]
     Indication: PRODUCT USED FOR UNKNOWN INDICATION
  2. PARACETAMOL [Suspect]
  3. PARACETAMOL [Suspect]
     Indication: INTENTIONAL OVERDOSE
  4. ASPIRIN [Suspect]
     Indication: INTENTIONAL OVERDOSE

REACTIONS (10)
  - AGITATION [None]
  - RENAL FAILURE ACUTE [None]
  - HYPOGLYCAEMIA [None]
  - MULTI-ORGAN FAILURE [None]
  - OVERDOSE [None]
  - CONFUSIONAL STATE [None]
  - SHOCK [None]
  - GENERAL PHYSICAL HEALTH DETERIORATION [None]
  - TOXICITY TO VARIOUS AGENTS [None]
  - ACUTE RESPIRATORY DISTRESS SYNDROME [None]
